FAERS Safety Report 7326197-1 (Version None)
Quarter: 2011Q1

REPORT INFORMATION
  Report Type: 
  Country: None (occurrence: None)
  Receive Date: 20110302
  Receipt Date: 20110217
  Transmission Date: 20110831
  Serious: Yes (Other)
  Sender: FDA-Public Use
  Company Number: US-ELI_LILLY_AND_COMPANY-US201102005525

PATIENT
  Sex: Male

DRUGS (6)
  1. CYMBALTA [Suspect]
     Dosage: 60 MG, UNK
  2. CYMBALTA [Suspect]
     Indication: DEPRESSION
     Dosage: 30 MG, UNK
     Dates: start: 20080101
  3. CYMBALTA [Suspect]
     Dosage: 60 MG, 2/D
  4. CYMBALTA [Suspect]
     Dosage: 60 MG, UNK
  5. KLONOPIN [Concomitant]
     Indication: ANXIETY
  6. CYMBALTA [Suspect]
     Dosage: 30 MG, UNK
     Dates: end: 20110214

REACTIONS (25)
  - PAIN [None]
  - ROAD TRAFFIC ACCIDENT [None]
  - WHIPLASH INJURY [None]
  - MIGRAINE [None]
  - NERVOUS SYSTEM DISORDER [None]
  - HYPOAESTHESIA [None]
  - IRRITABILITY [None]
  - IMPAIRED DRIVING ABILITY [None]
  - DRUG WITHDRAWAL SYNDROME [None]
  - DECREASED APPETITE [None]
  - INSOMNIA [None]
  - ABNORMAL BEHAVIOUR [None]
  - FEELING ABNORMAL [None]
  - ABDOMINAL DISTENSION [None]
  - TRAUMATIC SHOCK [None]
  - BACK PAIN [None]
  - WEIGHT FLUCTUATION [None]
  - MOOD ALTERED [None]
  - IMPAIRED SELF-CARE [None]
  - JOINT INJURY [None]
  - PSYCHOMOTOR SKILLS IMPAIRED [None]
  - ADVERSE EVENT [None]
  - NIGHTMARE [None]
  - PARAESTHESIA [None]
  - DRUG INEFFECTIVE [None]
